FAERS Safety Report 25393107 (Version 1)
Quarter: 2025Q2

REPORT INFORMATION
  Report Type: Spontaneous
  Country: HR (occurrence: HR)
  Receive Date: 20250604
  Receipt Date: 20250604
  Transmission Date: 20250717
  Serious: Yes (Other)
  Sender: NOVARTIS
  Company Number: HR-002147023-NVSC2025HR085744

PATIENT
  Age: 39 Year
  Sex: Female

DRUGS (2)
  1. RIBOCICLIB [Suspect]
     Active Substance: RIBOCICLIB
     Indication: Metastases to breast
     Route: 065
     Dates: start: 202502, end: 202504
  2. LETROZOLE [Suspect]
     Active Substance: LETROZOLE
     Indication: Metastases to breast
     Route: 065
     Dates: start: 202502, end: 202504

REACTIONS (4)
  - Hepatitis [Unknown]
  - Hepatotoxicity [Unknown]
  - Hepatic lesion [Unknown]
  - Off label use [Unknown]

NARRATIVE: CASE EVENT DATE: 20250201
